FAERS Safety Report 5693204-1 (Version None)
Quarter: 2008Q2

REPORT INFORMATION
  Report Type: 
  Country: None (occurrence: None)
  Receive Date: 20080403
  Receipt Date: 20080328
  Transmission Date: 20081010
  Serious: Yes (Other)
  Sender: FDA-Public Use
  Company Number: US-ASTRAZENECA-2008UW06280

PATIENT
  Age: 77 Year
  Sex: Female
  Weight: 63.5 kg

DRUGS (3)
  1. ARIMIDEX [Suspect]
     Dosage: 1 MG
     Route: 048
     Dates: start: 20070901
  2. FOSAMAX [Concomitant]
  3. VITAMINS [Concomitant]

REACTIONS (2)
  - GAIT DISTURBANCE [None]
  - HYPOKINESIA [None]
